FAERS Safety Report 21930818 (Version 2)
Quarter: 2023Q1

REPORT INFORMATION
  Report Type: Spontaneous
  Country: JP (occurrence: JP)
  Receive Date: 20230131
  Receipt Date: 20230223
  Transmission Date: 20230418
  Serious: Yes (Other)
  Sender: FDA-Public Use
  Company Number: JP-BEH-2023154576

PATIENT
  Age: 17 Year
  Sex: Female

DRUGS (2)
  1. HUMAN IMMUNOGLOBULIN G [Suspect]
     Active Substance: HUMAN IMMUNOGLOBULIN G
     Indication: Immune-mediated myositis
     Dosage: 400 MILLIGRAM/KILOGRAM
     Route: 042
  2. METHOTREXATE [Suspect]
     Active Substance: METHOTREXATE
     Indication: Immune-mediated myositis
     Dosage: 8 MILLIGRAM, QW
     Route: 048

REACTIONS (3)
  - Leukopenia [Recovered/Resolved]
  - No adverse event [Unknown]
  - Off label use [Unknown]
